FAERS Safety Report 6328322-8 (Version None)
Quarter: 2009Q3

REPORT INFORMATION
  Report Type: 
  Country: None (occurrence: None)
  Receive Date: 20090825
  Receipt Date: 20090420
  Transmission Date: 20100115
  Serious: Yes (Hospitalization)
  Sender: FDA-Public Use
  Company Number: US-ABBOTT-09P-163-0568967-00

PATIENT
  Sex: Female
  Weight: 74.002 kg

DRUGS (2)
  1. SYNTHROID [Suspect]
     Indication: HYPOTHYROIDISM
     Route: 048
     Dates: start: 20080501
  2. SYNTHROID [Suspect]
     Route: 048
     Dates: end: 20080501

REACTIONS (4)
  - ANXIETY [None]
  - ARRHYTHMIA [None]
  - BLOOD PRESSURE INCREASED [None]
  - PALPITATIONS [None]
